FAERS Safety Report 5577598-3 (Version None)
Quarter: 2007Q4

REPORT INFORMATION
  Report Type: 
  Country: None (occurrence: None)
  Receive Date: 20071230
  Receipt Date: 20071217
  Transmission Date: 20080405
  Serious: Yes (Life-Threatening, Hospitalization)
  Sender: FDA-Public Use
  Company Number: JP-TYCO HEALTHCARE/MALLINCKRODT-T200701436

PATIENT

DRUGS (13)
  1. OPTIRAY 300 [Suspect]
     Indication: ARTERIOGRAM CORONARY
     Dosage: 30 ML, SINGLE
     Route: 013
     Dates: start: 20071115, end: 20071115
  2. PROCAINE HYDROCHLORIDE INJ [Concomitant]
     Indication: ARTERIOGRAM CORONARY
     Dosage: 5 ML, SINGLE
     Route: 058
     Dates: start: 20071115, end: 20071115
  3. HEPARIN [Concomitant]
     Indication: ARTERIOGRAM CORONARY
     Dosage: UNK, SINGLE
     Route: 013
     Dates: start: 20071115, end: 20071115
  4. NITROGLYCERIN [Concomitant]
     Indication: ARTERIOGRAM CORONARY
     Dosage: 0.1 MG, SINGLE
     Route: 013
     Dates: start: 20071115, end: 20071115
  5. ASPIRIN [Concomitant]
     Indication: ANGINA PECTORIS
     Dosage: 100 MG, QD
     Route: 048
  6. TICLOPIDINE HYDROCHLORIDE [Concomitant]
     Indication: ANGINA PECTORIS
     Dosage: 100 MG, BID
     Route: 048
     Dates: start: 20050401
  7. WARFARIN POTASSIUM [Concomitant]
     Indication: ARTERIOSCLEROSIS OBLITERANS
     Dosage: 4 MG, QD
     Route: 048
     Dates: start: 20050901
  8. CILOSTAZOL [Concomitant]
     Indication: ARTERIOSCLEROSIS OBLITERANS
     Dosage: 100 MG, BID
     Route: 048
  9. INSULIN ASPART [Concomitant]
     Indication: DIABETES MELLITUS
     Dosage: 18 UNITS AND 10 UNITS TWICE
     Route: 058
  10. TEMOCAPRIL HYDROCHLORIDE [Concomitant]
     Indication: HYPERTENSION
     Dosage: 2 MG, QD
     Route: 048
     Dates: start: 20050901, end: 20071203
  11. OMEPRAZOLE [Concomitant]
     Indication: GASTRITIS
     Dosage: 20 MG, QD
     Route: 048
     Dates: start: 20070901
  12. ATORVASTATIN CALCIUM [Concomitant]
     Indication: HYPERLIPIDAEMIA
     Dosage: 10 MG, QD
     Route: 048
     Dates: start: 20070201
  13. DILTIAZEM HYDROCHLORIDE [Concomitant]
     Indication: ANGINA PECTORIS
     Dosage: 30 MG, TID
     Route: 048
     Dates: start: 20050201

REACTIONS (2)
  - ASTHMA [None]
  - SHOCK [None]
